FAERS Safety Report 23227285 (Version 2)
Quarter: 2023Q4

REPORT INFORMATION
  Report Type: Report from Study
  Country: JP (occurrence: JP)
  Receive Date: 20231124
  Receipt Date: 20231211
  Transmission Date: 20240110
  Serious: Yes (Other)
  Sender: FDA-Public Use
  Company Number: JP-JNJFOC-20231114943

PATIENT
  Age: 46 Year
  Sex: Female
  Weight: 46.1 kg

DRUGS (37)
  1. BORTEZOMIB [Suspect]
     Active Substance: BORTEZOMIB
     Indication: Primary amyloidosis
     Dosage: 1.3 MILLIGRAM/SQ. METER, QD
     Route: 065
     Dates: start: 20230711, end: 20230711
  2. BORTEZOMIB [Suspect]
     Active Substance: BORTEZOMIB
     Dosage: 1.3 MILLIGRAM/SQ. METER, QD
     Route: 065
     Dates: start: 20230718, end: 20230718
  3. BORTEZOMIB [Suspect]
     Active Substance: BORTEZOMIB
     Dosage: 1.3 MILLIGRAM/SQ. METER, QD
     Route: 065
     Dates: start: 20230728, end: 20230728
  4. BORTEZOMIB [Suspect]
     Active Substance: BORTEZOMIB
     Dosage: 1.3 MILLIGRAM/SQ. METER, QD
     Route: 065
     Dates: start: 20230804, end: 20230804
  5. BORTEZOMIB [Suspect]
     Active Substance: BORTEZOMIB
     Dosage: 1.3 MILLIGRAM/SQ. METER, QD
     Route: 065
     Dates: start: 20230818, end: 20230818
  6. BORTEZOMIB [Suspect]
     Active Substance: BORTEZOMIB
     Dosage: 1.3 MILLIGRAM/SQ. METER, QD
     Route: 065
     Dates: start: 20230825, end: 20230825
  7. BORTEZOMIB [Suspect]
     Active Substance: BORTEZOMIB
     Dosage: 1.3 MILLIGRAM/SQ. METER, QD
     Route: 065
     Dates: start: 20230901, end: 20230901
  8. BORTEZOMIB [Suspect]
     Active Substance: BORTEZOMIB
     Dosage: 1.3 MILLIGRAM/SQ. METER, QD
     Route: 065
     Dates: start: 20230908, end: 20230908
  9. DEXAMETHASONE [Suspect]
     Active Substance: DEXAMETHASONE
     Indication: Primary amyloidosis
     Dosage: 40 MILLIGRAM, QD
     Route: 065
     Dates: start: 20230711, end: 20230711
  10. DEXAMETHASONE [Suspect]
     Active Substance: DEXAMETHASONE
     Dosage: 40 MILLIGRAM, QD
     Route: 065
     Dates: start: 20230718, end: 20230718
  11. DEXAMETHASONE [Suspect]
     Active Substance: DEXAMETHASONE
     Dosage: 40 MILLIGRAM, QD
     Route: 065
     Dates: start: 20230728, end: 20230728
  12. DEXAMETHASONE [Suspect]
     Active Substance: DEXAMETHASONE
     Dosage: 40 MILLIGRAM, QD
     Route: 065
     Dates: start: 20230804, end: 20230804
  13. DEXAMETHASONE [Suspect]
     Active Substance: DEXAMETHASONE
     Dosage: 40 MILLIGRAM, QD
     Route: 065
     Dates: start: 20230818, end: 20230818
  14. DEXAMETHASONE [Suspect]
     Active Substance: DEXAMETHASONE
     Dosage: 40 MILLIGRAM, QD
     Route: 065
     Dates: start: 20230825, end: 20230825
  15. DEXAMETHASONE [Suspect]
     Active Substance: DEXAMETHASONE
     Dosage: 40 MILLIGRAM, QD
     Route: 065
     Dates: start: 20230901, end: 20230901
  16. DEXAMETHASONE [Suspect]
     Active Substance: DEXAMETHASONE
     Dosage: 40 MILLIGRAM, QD
     Route: 065
     Dates: start: 20230908, end: 20230908
  17. DARATUMUMAB\HYALURONIDASE-FIHJ [Suspect]
     Active Substance: DARATUMUMAB\HYALURONIDASE-FIHJ
     Indication: Primary amyloidosis
     Dosage: 1800 MILLIGRAM, QD
     Route: 058
     Dates: start: 20230711, end: 20230711
  18. DARATUMUMAB\HYALURONIDASE-FIHJ [Suspect]
     Active Substance: DARATUMUMAB\HYALURONIDASE-FIHJ
     Dosage: 1800 MILLIGRAM, QD
     Route: 058
     Dates: start: 20230718, end: 20230718
  19. DARATUMUMAB\HYALURONIDASE-FIHJ [Suspect]
     Active Substance: DARATUMUMAB\HYALURONIDASE-FIHJ
     Dosage: 1800 MILLIGRAM, QD
     Route: 058
     Dates: start: 20230728, end: 20230728
  20. DARATUMUMAB\HYALURONIDASE-FIHJ [Suspect]
     Active Substance: DARATUMUMAB\HYALURONIDASE-FIHJ
     Dosage: 1800 MILLIGRAM, QD
     Route: 058
     Dates: start: 20230804, end: 20230804
  21. DARATUMUMAB\HYALURONIDASE-FIHJ [Suspect]
     Active Substance: DARATUMUMAB\HYALURONIDASE-FIHJ
     Dosage: 1800 MILLIGRAM, QD
     Route: 058
     Dates: start: 20230818, end: 20230818
  22. DARATUMUMAB\HYALURONIDASE-FIHJ [Suspect]
     Active Substance: DARATUMUMAB\HYALURONIDASE-FIHJ
     Dosage: 1800 MILLIGRAM, QD
     Route: 058
     Dates: start: 20230825, end: 20230825
  23. DARATUMUMAB\HYALURONIDASE-FIHJ [Suspect]
     Active Substance: DARATUMUMAB\HYALURONIDASE-FIHJ
     Dosage: 1800 MILLIGRAM, QD
     Route: 058
     Dates: start: 20230901, end: 20230901
  24. DARATUMUMAB\HYALURONIDASE-FIHJ [Suspect]
     Active Substance: DARATUMUMAB\HYALURONIDASE-FIHJ
     Dosage: 1800 MILLIGRAM, QD
     Route: 058
     Dates: start: 20230908, end: 20230908
  25. CYCLOPHOSPHAMIDE [Concomitant]
     Active Substance: CYCLOPHOSPHAMIDE
     Indication: Primary amyloidosis
     Dosage: 300 MILLIGRAM/SQ. METER, QD
     Route: 065
     Dates: start: 20230711, end: 20230711
  26. CYCLOPHOSPHAMIDE [Concomitant]
     Active Substance: CYCLOPHOSPHAMIDE
     Dosage: 300 MILLIGRAM/SQ. METER, QD
     Route: 065
     Dates: start: 20230718, end: 20230718
  27. CYCLOPHOSPHAMIDE [Concomitant]
     Active Substance: CYCLOPHOSPHAMIDE
     Dosage: 300 MILLIGRAM/SQ. METER, QD
     Route: 065
     Dates: start: 20230728, end: 20230728
  28. CYCLOPHOSPHAMIDE [Concomitant]
     Active Substance: CYCLOPHOSPHAMIDE
     Dosage: 300 MILLIGRAM/SQ. METER, QD
     Route: 065
     Dates: start: 20230804, end: 20230804
  29. CYCLOPHOSPHAMIDE [Concomitant]
     Active Substance: CYCLOPHOSPHAMIDE
     Dosage: 300 MILLIGRAM/SQ. METER, QD
     Route: 065
     Dates: start: 20230818, end: 20230818
  30. CYCLOPHOSPHAMIDE [Concomitant]
     Active Substance: CYCLOPHOSPHAMIDE
     Dosage: 300 MILLIGRAM/SQ. METER, QD
     Route: 065
     Dates: start: 20230825, end: 20230825
  31. CYCLOPHOSPHAMIDE [Concomitant]
     Active Substance: CYCLOPHOSPHAMIDE
     Dosage: 300 MILLIGRAM/SQ. METER, QD
     Route: 065
     Dates: start: 20230901, end: 20230901
  32. CYCLOPHOSPHAMIDE [Concomitant]
     Active Substance: CYCLOPHOSPHAMIDE
     Dosage: 300 MILLIGRAM/SQ. METER, QD
     Route: 065
     Dates: start: 20230908, end: 20230908
  33. URSODIOL [Concomitant]
     Active Substance: URSODIOL
     Indication: Hepatic function abnormal
     Dosage: 300 MILLIGRAM, QD
     Route: 065
     Dates: start: 20230721
  34. DL-METHIONINE;GLYCINE;GLYCYRRHIZIC ACID [Concomitant]
     Indication: Hepatic function abnormal
     Dosage: 75 MILLIGRAM, QD
     Route: 065
     Dates: start: 20230725, end: 20231026
  35. MONTELUKAST [Concomitant]
     Active Substance: MONTELUKAST SODIUM
     Indication: Infusion related reaction
     Dosage: 10 MILLIGRAM, QD
     Route: 065
     Dates: start: 20230711, end: 20230711
  36. POLARAMINE [Concomitant]
     Active Substance: DEXCHLORPHENIRAMINE MALEATE
     Indication: Infusion related reaction
     Dosage: 5 MILLIGRAM, QD
     Route: 065
     Dates: start: 20230711, end: 20230711
  37. ACETAMINOPHEN [Concomitant]
     Active Substance: ACETAMINOPHEN
     Indication: Infusion related reaction
     Dosage: 600 MILLIGRAM, QD
     Route: 065
     Dates: start: 20230711, end: 20230711

REACTIONS (4)
  - Hepatic function abnormal [Recovering/Resolving]
  - Infusion related reaction [Recovered/Resolved]
  - Oropharyngeal discomfort [Recovered/Resolved]
  - Urticaria [Recovered/Resolved]

NARRATIVE: CASE EVENT DATE: 20230711
